FAERS Safety Report 18466618 (Version 1)
Quarter: 2020Q4

REPORT INFORMATION
  Report Type: Spontaneous
  Country: US (occurrence: US)
  Receive Date: 20201105
  Receipt Date: 20201105
  Transmission Date: 20210114
  Serious: Yes (Death, Life-Threatening, Hospitalization, Other)
  Sender: FDA-Public Use
  Company Number: US-ACCORD-207116

PATIENT
  Age: 60 Year
  Sex: Male

DRUGS (2)
  1. HYDROXYCHLOROQUINE [Suspect]
     Active Substance: HYDROXYCHLOROQUINE
     Indication: COVID-19
  2. HYDROXYCHLOROQUINE [Suspect]
     Active Substance: HYDROXYCHLOROQUINE
     Indication: COVID-19

REACTIONS (5)
  - Multiple organ dysfunction syndrome [Fatal]
  - Methaemoglobinaemia [Not Recovered/Not Resolved]
  - Off label use [Unknown]
  - Shock [Fatal]
  - Haemolytic anaemia [Not Recovered/Not Resolved]
